FAERS Safety Report 25261326 (Version 1)
Quarter: 2025Q2

REPORT INFORMATION
  Report Type: Spontaneous
  Country: JP (occurrence: JP)
  Receive Date: 20250501
  Receipt Date: 20250501
  Transmission Date: 20250717
  Serious: Yes (Other)
  Sender: TAKEDA
  Company Number: JP-TAKEDA-2025TJP002229

PATIENT
  Age: 30 Year
  Sex: Female

DRUGS (1)
  1. AGRYLIN [Suspect]
     Active Substance: ANAGRELIDE HYDROCHLORIDE
     Indication: Essential thrombocythaemia

REACTIONS (2)
  - Abortion [Unknown]
  - Pregnancy [Unknown]

NARRATIVE: CASE EVENT DATE: 20250101
